FAERS Safety Report 5800223-0 (Version None)
Quarter: 2008Q3

REPORT INFORMATION
  Report Type: 
  Country: None (occurrence: None)
  Receive Date: 20080703
  Receipt Date: 20080620
  Transmission Date: 20090109
  Serious: Yes (Hospitalization, Other)
  Sender: FDA-Public Use
  Company Number: DE-ELI_LILLY_AND_COMPANY-DE200711006143

PATIENT
  Sex: Male
  Weight: 94 kg

DRUGS (16)
  1. GEMZAR [Suspect]
     Indication: ADENOCARCINOMA
     Dosage: 1000 MG/M2, ON DAY 1, 8 AND 15 (CYCLE LENGTH UNKNOWN)
     Route: 065
     Dates: start: 20070815, end: 20071105
  2. ENALAPRIL MALEATE [Concomitant]
     Dosage: 10 MG, DAILY (1/D)
     Route: 048
  3. ENALAPRIL MALEATE [Concomitant]
     Dosage: 5 MG, 3/D
     Route: 048
  4. ENALAPRIL MALEATE [Concomitant]
     Dosage: 5 MG, DAILY (1/D)
  5. DREISAFER [Concomitant]
     Dosage: 100 MG, DAILY (1/D)
     Route: 048
  6. BELOC ZOK [Concomitant]
     Dosage: 190 MG, DAILY (1/D)
     Route: 048
  7. BELOC ZOK [Concomitant]
     Dosage: 47.5 MG, DAILY (1/D)
     Route: 048
  8. VERGENTAN [Concomitant]
     Dosage: 100 MG, DAILY (1/D)
     Route: 048
  9. EMBOLEX [Concomitant]
     Dosage: 8000 IU, DAILY (1/D)
     Route: 058
  10. MIRTAZAPINE [Concomitant]
     Dosage: 45 MG, DAILY (1/D)
     Route: 048
  11. LORAZEPAM [Concomitant]
     Dosage: 1 MG, UNKNOWN
     Route: 065
  12. AMLODIPIN /00972401/ [Concomitant]
     Dosage: 5 MG, DAILY (1/D)
  13. PREDNISONE TAB [Concomitant]
     Dosage: 50 MG, DAILY (1/D)
     Dates: start: 20071205
  14. PREDNISONE TAB [Concomitant]
     Dosage: 5 MG, DAILY (1/D)
  15. LASIX [Concomitant]
     Dosage: 40 MG, DAILY (1/D)
  16. NEXIUM [Concomitant]
     Dosage: 20 MG, DAILY (1/D)

REACTIONS (11)
  - ALVEOLITIS [None]
  - ANAEMIA [None]
  - FUNGAL INFECTION [None]
  - HYPERTENSION [None]
  - INTERSTITIAL LUNG DISEASE [None]
  - LEUKOPENIA [None]
  - NEUTROPENIA [None]
  - ORTHOPNOEA [None]
  - THROMBOCYTOPENIA [None]
  - URINARY RETENTION [None]
  - URINARY TRACT INFECTION [None]
